FAERS Safety Report 23100538 (Version 1)
Quarter: 2023Q4

REPORT INFORMATION
  Report Type: Spontaneous
  Country: US (occurrence: US)
  Receive Date: 20231024
  Receipt Date: 20231024
  Transmission Date: 20240110
  Serious: No
  Sender: FDA-Public Use
  Company Number: US-BRISTOL-MYERS SQUIBB COMPANY-2023-149354

PATIENT
  Age: 87 Year
  Sex: Male

DRUGS (1)
  1. LENALIDOMIDE [Suspect]
     Active Substance: LENALIDOMIDE
     Indication: Polyneuropathy
     Dosage: FREQUENCY: TAKE 1 CAPSULE BY MOUTH EVERY OTHER ?DAY OF A 28 DAY CYCLE.
     Route: 048
     Dates: start: 20221017

REACTIONS (2)
  - Product distribution issue [Unknown]
  - Off label use [Unknown]
